APPROVED DRUG PRODUCT: PIPERAZINE CITRATE
Active Ingredient: PIPERAZINE CITRATE
Strength: EQ 500MG BASE/5ML
Dosage Form/Route: SYRUP;ORAL
Application: A080963 | Product #001
Applicant: LANNETT CO INC
Approved: Approved Prior to Jan 1, 1982 | RLD: No | RS: No | Type: DISCN